FAERS Safety Report 7733127-7 (Version None)
Quarter: 2011Q3

REPORT INFORMATION
  Report Type: 
  Country: None (occurrence: None)
  Receive Date: 20110907
  Receipt Date: 20110902
  Transmission Date: 20111222
  Serious: No
  Sender: FDA-Public Use
  Company Number: US-PFIZER INC-2011172032

PATIENT
  Sex: Female

DRUGS (5)
  1. ARICEPT [Suspect]
     Dosage: UNK
  2. DILANTIN-125 [Suspect]
     Dosage: UNK
  3. DIAZEPAM [Suspect]
     Dosage: UNK
  4. AMITRIPTYLINE HCL [Suspect]
     Dosage: UNK
  5. NAMENDA [Suspect]
     Dosage: UNK

REACTIONS (1)
  - TONGUE DISORDER [None]
